FAERS Safety Report 5105494-4 (Version None)
Quarter: 2006Q3

REPORT INFORMATION
  Report Type: 
  Country: None (occurrence: None)
  Receive Date: 20060915
  Receipt Date: 20040112
  Transmission Date: 20061208
  Serious: Yes (Disabling, Other)
  Sender: FDA-Public Use
  Company Number: US-BAYER-200410701BWH

PATIENT
  Age: 39 Year
  Sex: Male
  Weight: 147 kg

DRUGS (8)
  1. LEVITRA [Suspect]
     Indication: ERECTILE DYSFUNCTION
     Dosage: AS USED: 10 MG  UNIT DOSE: 10 MG
     Route: 048
     Dates: start: 20031001, end: 20040108
  2. GLUCOPHAGE [Concomitant]
     Dosage: TOTAL DAILY DOSE: 2000 MG
  3. LISTOPRIL [Concomitant]
  4. ASPIRIN [Concomitant]
     Dosage: TOTAL DAILY DOSE: 81 MG  UNIT DOSE: 81 MG
  5. MULTI-VITAMIN [Concomitant]
  6. ACTOS [Concomitant]
  7. LASIX [Concomitant]
  8. COMBIVENT [Concomitant]

REACTIONS (5)
  - CHROMATOPSIA [None]
  - COLOUR BLINDNESS ACQUIRED [None]
  - VISION BLURRED [None]
  - VISUAL BRIGHTNESS [None]
  - VISUAL DISTURBANCE [None]
